FAERS Safety Report 9266054 (Version 2)
Quarter: 2013Q4

REPORT INFORMATION
  Report Type: Spontaneous
  Country: US (occurrence: US)
  Receive Date: 20130501
  Receipt Date: 20131003
  Transmission Date: 20140711
  Serious: Yes (Hospitalization, Other)
  Sender: FDA-Public Use
  Company Number: US-B.I. PHARMACEUTICALS,INC./RIDGEFIELD-2013-BI-12174BP

PATIENT
  Age: 78 Year
  Sex: Male
  Weight: 105.23 kg

DRUGS (17)
  1. PRADAXA [Suspect]
     Indication: ANTICOAGULANT THERAPY
     Dosage: 300 MG
     Route: 048
     Dates: start: 20110526, end: 20110712
  2. ADVAIR DISKUS [Concomitant]
     Dosage: 2 PUF
     Dates: start: 2009
  3. BACITRACIN PLUS [Concomitant]
  4. CLARINEX [Concomitant]
     Dosage: 5 MG
     Dates: start: 2010, end: 2011
  5. COLACE [Concomitant]
     Dosage: 100 MG
  6. FISH OIL [Concomitant]
     Dosage: 1200 MG
  7. FLOMAX [Concomitant]
     Dosage: 0.4 MG
     Dates: start: 2009
  8. GLUCOSAMINE SULFATE [Concomitant]
  9. GLYCOLAX [Concomitant]
     Dates: start: 2011
  10. JANUVIA [Concomitant]
     Dosage: 100 MG
     Dates: start: 2010
  11. LACTATE [Concomitant]
     Dates: start: 2010
  12. LASIX [Concomitant]
     Dosage: 60 MG
     Dates: start: 2003
  13. LEVITRA [Concomitant]
     Dates: start: 2010, end: 2011
  14. LIPITOR [Concomitant]
     Dosage: 20 MG
  15. NEURONTIN [Concomitant]
     Dosage: 900 MG
     Dates: start: 2010
  16. PROAIR HFA [Concomitant]
     Route: 055
  17. PROVENTIL HFA [Concomitant]
     Route: 055

REACTIONS (2)
  - Gastrointestinal haemorrhage [Unknown]
  - Haemorrhagic anaemia [Unknown]
